FAERS Safety Report 20008209 (Version 2)
Quarter: 2021Q4

REPORT INFORMATION
  Report Type: Report from Study
  Country: PT (occurrence: None)
  Receive Date: 20211028
  Receipt Date: 20211104
  Transmission Date: 20220304
  Serious: Yes (Hospitalization)
  Sender: FDA-Public Use
  Company Number: PT-MERCK HEALTHCARE KGAA-9274592

PATIENT
  Age: 30 Year
  Sex: Female

DRUGS (2)
  1. MAVENCLAD [Suspect]
     Active Substance: CLADRIBINE
     Indication: Multiple sclerosis
     Dosage: YEAR ONE WEEK ONE THERAPY
     Route: 048
     Dates: start: 20210129
  2. MAVENCLAD [Suspect]
     Active Substance: CLADRIBINE
     Dosage: YEAR ONE WEEK TWO THERAPY
     Route: 048
     Dates: start: 20210226

REACTIONS (1)
  - Appendicitis [Recovering/Resolving]

NARRATIVE: CASE EVENT DATE: 20211012
